FAERS Safety Report 22925062 (Version 3)
Quarter: 2024Q2

REPORT INFORMATION
  Report Type: Report from Study
  Country: CA (occurrence: CA)
  Receive Date: 20230908
  Receipt Date: 20240410
  Transmission Date: 20240716
  Serious: Yes (Other)
  Sender: FDA-Public Use
  Company Number: CA-SANDOZ-SDZ2023CA024980

PATIENT
  Age: 37 Year
  Sex: Male

DRUGS (2)
  1. HYRIMOZ [Suspect]
     Active Substance: ADALIMUMAB-ADAZ
     Indication: Crohn^s disease
     Dosage: 40 MG, Q2W
     Route: 058
     Dates: start: 20230606
  2. HYRIMOZ [Suspect]
     Active Substance: ADALIMUMAB-ADAZ
     Dosage: 80 MG, Q2W
     Route: 065

REACTIONS (7)
  - Haematemesis [Unknown]
  - Pyoderma gangrenosum [Unknown]
  - Headache [Unknown]
  - Fatigue [Unknown]
  - Cardiac disorder [Unknown]
  - Aphthous ulcer [Unknown]
  - Product dose omission issue [Unknown]

NARRATIVE: CASE EVENT DATE: 20230820
